FAERS Safety Report 10399586 (Version 1)
Quarter: 2014Q3

REPORT INFORMATION
  Report Type: Spontaneous
  Country: US (occurrence: None)
  Receive Date: 20140819
  Receipt Date: 20140819
  Transmission Date: 20150326
  Serious: Yes (Death)
  Sender: FDA-Public Use
  Company Number: None

PATIENT
  Age: 86 Year
  Sex: Male

DRUGS (1)
  1. ZYTIGA [Suspect]
     Active Substance: ABIRATERONE ACETATE
     Indication: PROSTATE CANCER
     Dosage: 4 TABS (250 MG)
     Route: 048
     Dates: start: 20140304, end: 20140625

REACTIONS (2)
  - Procedural complication [None]
  - Heart valve replacement [None]

NARRATIVE: CASE EVENT DATE: 20140707
